FAERS Safety Report 6534541-8 (Version None)
Quarter: 2009Q4

REPORT INFORMATION
  Report Type: 
  Country: None (occurrence: None)
  Receive Date: 20091228
  Receipt Date: 20071018
  Transmission Date: 20100525
  Serious: Yes (Other)
  Sender: FDA-Public Use
  Company Number: BDI-010398

PATIENT
  Age: 62 Year
  Sex: Male

DRUGS (2)
  1. MULTIHANCE [Suspect]
     Indication: CAROTID ARTERY DISEASE
     Dosage: 35ML ONCE
     Dates: start: 20070927, end: 20070927
  2. MULTIHANCE [Suspect]
     Indication: NUCLEAR MAGNETIC RESONANCE IMAGING
     Dosage: 35ML ONCE
     Dates: start: 20070927, end: 20070927

REACTIONS (1)
  - HYPERSENSITIVITY [None]
